FAERS Safety Report 5504844-4 (Version None)
Quarter: 2007Q4

REPORT INFORMATION
  Report Type: 
  Country: None (occurrence: None)
  Receive Date: 20071102
  Receipt Date: 20071025
  Transmission Date: 20080405
  Serious: Yes (Other)
  Sender: FDA-Public Use
  Company Number: PHRM2007FR02480

PATIENT
  Age: 35 Year
  Sex: Male

DRUGS (2)
  1. VOLTAREN [Suspect]
     Indication: MUSCLE CONTRACTURE
     Dosage: 75 MG, QD
     Route: 048
  2. TETRAZEPAM [Concomitant]
     Indication: MUSCLE CONTRACTURE

REACTIONS (4)
  - CHILLS [None]
  - MYALGIA [None]
  - PYREXIA [None]
  - TRANSAMINASES INCREASED [None]
